FAERS Safety Report 5089361-0 (Version None)
Quarter: 2006Q3

REPORT INFORMATION
  Report Type: 
  Country: None (occurrence: None)
  Receive Date: 20060822
  Receipt Date: 20060804
  Transmission Date: 20061208
  Serious: Yes (Hospitalization)
  Sender: FDA-Public Use
  Company Number: US200607002215

PATIENT
  Sex: Female

DRUGS (2)
  1. FORTEO [Suspect]
     Indication: OSTEOPOROSIS
     Dates: start: 20050801
  2. FORTEO [Concomitant]

REACTIONS (8)
  - BACK INJURY [None]
  - DEHYDRATION [None]
  - INTERVERTEBRAL DISC OPERATION [None]
  - PHARMACEUTICAL PRODUCT COMPLAINT [None]
  - POLLAKIURIA [None]
  - SPINAL LAMINECTOMY [None]
  - THIRST [None]
  - URINE OUTPUT INCREASED [None]
